FAERS Safety Report 8494362-6 (Version None)
Quarter: 2012Q2

REPORT INFORMATION
  Report Type: 
  Country: None (occurrence: None)
  Receive Date: 20120628
  Receipt Date: 20120612
  Transmission Date: 20120825
  Serious: Yes (Other)
  Sender: FDA-Public Use
  Company Number: 2012000146

PATIENT
  Age: 62 Year
  Sex: Male

DRUGS (2)
  1. ACEON [Suspect]
     Indication: HYPERTENSION
     Dosage: 5 MG, QD, ORAL
     Route: 048
     Dates: start: 20090101, end: 20120611
  2. SECTRAL [Concomitant]

REACTIONS (2)
  - INSOMNIA [None]
  - BRONCHOSPASM [None]
